FAERS Safety Report 4868274-0 (Version None)
Quarter: 2005Q4

REPORT INFORMATION
  Report Type: 
  Country: None (occurrence: None)
  Receive Date: 20051229
  Receipt Date: 20050929
  Transmission Date: 20060501
  Serious: Yes (Hospitalization, Disabling)
  Sender: FDA-Public Use
  Company Number: US-MERCK-0510USA00361

PATIENT
  Age: 63 Year
  Sex: Male
  Weight: 90 kg

DRUGS (3)
  1. VIOXX [Suspect]
     Indication: ARTHRALGIA
     Route: 048
     Dates: start: 20000101, end: 20010101
  2. ASPIRIN [Concomitant]
     Route: 065
  3. VIOXX [Suspect]
     Indication: SHOULDER PAIN
     Route: 048
     Dates: start: 20000101, end: 20010101

REACTIONS (20)
  - ACUTE CORONARY SYNDROME [None]
  - ACUTE MYOCARDIAL INFARCTION [None]
  - ARTHRITIS [None]
  - ATELECTASIS [None]
  - EJECTION FRACTION DECREASED [None]
  - EXTRASYSTOLES [None]
  - GINGIVITIS [None]
  - GRAFT INFECTION [None]
  - ISCHAEMIA [None]
  - LOWER EXTREMITY MASS [None]
  - MITRAL VALVE INCOMPETENCE [None]
  - MUSCULOSKELETAL CHEST PAIN [None]
  - NECK PAIN [None]
  - PNEUMONIA [None]
  - PROSTATE CANCER [None]
  - ROTATOR CUFF SYNDROME [None]
  - SINUS BRADYCARDIA [None]
  - SKIN CANCER [None]
  - TENDONITIS [None]
  - VENTRICULAR FAILURE [None]
